FAERS Safety Report 18124065 (Version 1)
Quarter: 2020Q3

REPORT INFORMATION
  Report Type: Spontaneous
  Country: BR (occurrence: BR)
  Receive Date: 20200807
  Receipt Date: 20200807
  Transmission Date: 20201103
  Serious: Yes (Other)
  Sender: FDA-Public Use
  Company Number: BR-SCIEGEN-2020SCILIT00176

PATIENT
  Age: 17 Year
  Sex: Male
  Weight: 133 kg

DRUGS (3)
  1. METFORMIN HYDROCHLORIDETABLETS [Suspect]
     Active Substance: METFORMIN HYDROCHLORIDE
     Indication: OBESITY
     Route: 065
  2. SIBUTRAMINE [Suspect]
     Active Substance: SIBUTRAMINE
     Indication: OBESITY
     Route: 065
  3. FLUOXETINE [Suspect]
     Active Substance: FLUOXETINE HYDROCHLORIDE
     Indication: OBESITY
     Route: 065

REACTIONS (1)
  - Drug ineffective for unapproved indication [Unknown]
